FAERS Safety Report 10949196 (Version 2)
Quarter: 2015Q2

REPORT INFORMATION
  Report Type: Spontaneous
  Country: IT (occurrence: None)
  Receive Date: 20150320
  Receipt Date: 20150401
  Transmission Date: 20150821
  Serious: Yes (Other)
  Sender: FDA-Public Use
  Company Number: KAD201503-000505

PATIENT
  Age: 55 Year
  Sex: Male

DRUGS (3)
  1. RIBAVIRIN (RIBAVIRIN) [Suspect]
     Active Substance: RIBAVIRIN
     Indication: CHRONIC HEPATITIS C
     Dosage: 12 UNITS
     Route: 048
     Dates: start: 20140401, end: 20150101
  2. BOCEPREVIR (BOCEPREVIR) [Suspect]
     Active Substance: BOCEPREVIR
     Indication: CHRONIC HEPATITIS C
     Dosage: 1 UNIT
     Route: 048
     Dates: start: 20140401, end: 20150101
  3. INTERFERON ALFA-2A PEGYLATED [Suspect]
     Active Substance: PEGINTERFERON ALFA-2A
     Indication: HEPATITIS C
     Dosage: 1 UNIT
     Dates: start: 20140401, end: 20140501

REACTIONS (6)
  - White blood cell count decreased [None]
  - Anaemia [None]
  - Haemorrhage [None]
  - Gingival bleeding [None]
  - Epistaxis [None]
  - Off label use [None]

NARRATIVE: CASE EVENT DATE: 20140401
